FAERS Safety Report 10468968 (Version 2)
Quarter: 2014Q4

REPORT INFORMATION
  Report Type: Spontaneous
  Country: US (occurrence: US)
  Receive Date: 20140923
  Receipt Date: 20141003
  Transmission Date: 20150528
  Serious: Yes (Hospitalization)
  Sender: FDA-Public Use
  Company Number: US-BIOGENIDEC-2014BI095450

PATIENT
  Age: 38 Year
  Sex: Female

DRUGS (1)
  1. TECFIDERA [Suspect]
     Active Substance: DIMETHYL FUMARATE
     Indication: MULTIPLE SCLEROSIS
     Route: 048
     Dates: start: 201408

REACTIONS (1)
  - Conversion disorder [Unknown]

NARRATIVE: CASE EVENT DATE: 201409
